FAERS Safety Report 5344519-8 (Version None)
Quarter: 2007Q2

REPORT INFORMATION
  Report Type: 
  Country: None (occurrence: None)
  Receive Date: 20070604
  Receipt Date: 20070523
  Transmission Date: 20071010
  Serious: Yes (Hospitalization)
  Sender: FDA-Public Use
  Company Number: IT-PFIZER INC-2007041781

PATIENT
  Sex: Female

DRUGS (2)
  1. EPIRUBICIN HYDROCHLORIDE [Suspect]
     Dosage: DAILY DOSE:160MG
     Route: 042
     Dates: start: 20070413, end: 20070413
  2. ENDOXAN [Suspect]
     Route: 042
     Dates: start: 20070413, end: 20070413

REACTIONS (1)
  - ERYTHEMA MULTIFORME [None]
